FAERS Safety Report 24622871 (Version 1)
Quarter: 2024Q4

REPORT INFORMATION
  Report Type: Spontaneous
  Country: US (occurrence: US)
  Receive Date: 20241115
  Receipt Date: 20241115
  Transmission Date: 20250114
  Serious: No
  Sender: AMGEN
  Company Number: US-AMGEN-USASP2024221845

PATIENT
  Age: 60 Year
  Sex: Female

DRUGS (2)
  1. TEPEZZA [Suspect]
     Active Substance: TEPROTUMUMAB-TRBW
     Indication: Toxic goitre
     Dosage: 532 MILLIGRAM (WEEK 0: 532MG PIV X1 DOSE)
     Route: 040
     Dates: start: 20240718
  2. TEPEZZA [Suspect]
     Active Substance: TEPROTUMUMAB-TRBW
     Dosage: 1064 MILLIGRAM, Q3WK (WEEK 3: 1064MG PIV Q3WK X 7 DOSES)
     Route: 040
     Dates: start: 2024

REACTIONS (1)
  - Blood pressure increased [Not Recovered/Not Resolved]

NARRATIVE: CASE EVENT DATE: 20241001
